FAERS Safety Report 4316113-9 (Version None)
Quarter: 2004Q1

REPORT INFORMATION
  Report Type: 
  Country: None (occurrence: None)
  Receive Date: 20040310
  Receipt Date: 20020123
  Transmission Date: 20041129
  Serious: Yes (Hospitalization)
  Sender: FDA-Public Use
  Company Number: 30018699-01H17G40-1

PATIENT
  Age: 51 Year
  Sex: Male
  Weight: 77.9 kg

DRUGS (13)
  1. EXTRANEAL [Suspect]
     Dosage: 7.5% ICODEXTRIN 2.5L; QD
     Dates: start: 20011010
  2. B-COMBIN SAD [Concomitant]
  3. ETALPHA (ALFACALCIDOL) [Concomitant]
  4. FOLIC ACID DAK [Concomitant]
  5. EPREX [Concomitant]
  6. APOVIT C-VITAMIN [Concomitant]
  7. FERRO DURETTER (FERROUS SULFATE) [Concomitant]
  8. CORODL [Concomitant]
  9. DIMITONE (CARVEDILOL) [Concomitant]
  10. LONITEN [Concomitant]
  11. RENAGEL [Concomitant]
  12. IMOVANE (ZOPLICONE) [Concomitant]
  13. CALCIUMACETAT [Concomitant]

REACTIONS (2)
  - PERITONEAL FLUID ANALYSIS ABNORMAL [None]
  - PERITONITIS [None]
